FAERS Safety Report 5890128-1 (Version None)
Quarter: 2008Q3

REPORT INFORMATION
  Report Type: 
  Country: None (occurrence: None)
  Receive Date: 20080919
  Receipt Date: 20080917
  Transmission Date: 20090109
  Serious: Yes (Life-Threatening)
  Sender: FDA-Public Use
  Company Number: SI-B.I. PHARMACEUTICALS,INC./RIDGEFIELD-2008-AP-00213AP

PATIENT
  Age: 60 Year
  Sex: Male
  Weight: 90 kg

DRUGS (6)
  1. ASASANTIN RETARD [Suspect]
     Indication: CEREBRAL INFARCTION
     Route: 048
     Dates: start: 20080801, end: 20080805
  2. CLEXANE [Concomitant]
     Dosage: .4ML
     Dates: start: 20080801
  3. TRITACE [Concomitant]
     Dosage: 2.5MG
  4. ULTOP [Concomitant]
     Dosage: 40MG
  5. GLIBENKLAMID [Concomitant]
  6. SORTIS [Concomitant]
     Dosage: 40MG

REACTIONS (2)
  - CARDIAC FAILURE [None]
  - PULMONARY OEDEMA [None]
